FAERS Safety Report 6807631-X (Version None)
Quarter: 2010Q2

REPORT INFORMATION
  Report Type: 
  Country: None (occurrence: None)
  Receive Date: 20100629
  Receipt Date: 20081125
  Transmission Date: 20101027
  Serious: No
  Sender: FDA-Public Use
  Company Number: US-PFIZER INC-2008088016

PATIENT
  Sex: Female

DRUGS (6)
  1. XANAX [Suspect]
  2. XANAX XR [Suspect]
  3. PROLIXIN [Suspect]
  4. IMIPRAMINE [Suspect]
  5. LEXAPRO [Suspect]
  6. ELAVIL [Suspect]

REACTIONS (3)
  - FATIGUE [None]
  - PANIC ATTACK [None]
  - SOMNOLENCE [None]
